FAERS Safety Report 26211043 (Version 1)
Quarter: 2025Q4

REPORT INFORMATION
  Report Type: Spontaneous
  Country: EU (occurrence: EU)
  Receive Date: 20251230
  Receipt Date: 20251230
  Transmission Date: 20260119
  Serious: Yes (Hospitalization, Other)
  Sender: AMGEN
  Company Number: EU-GLAXOSMITHKLINE-FR2020GSK204295

PATIENT
  Age: 64 Year
  Sex: Female
  Weight: 60 kg

DRUGS (7)
  1. BEVACIZUMAB [Suspect]
     Active Substance: BEVACIZUMAB
     Indication: Ovarian cancer
     Dosage: 15 MG/KG
     Route: 040
     Dates: start: 20190308
  2. PLACEBO [Suspect]
     Active Substance: PLACEBO
     Indication: Ovarian cancer
     Dosage: UNK(CAPSULE)
     Route: 048
     Dates: start: 20190924
  3. PLACEBO [Suspect]
     Active Substance: PLACEBO
     Dosage: 500 MILLIGRAM
     Route: 040
     Dates: start: 20190329
  4. PLACEBO [Suspect]
     Active Substance: PLACEBO
     Dosage: 1000 MG
     Route: 040
     Dates: start: 20190924
  5. CARBOPLATIN [Suspect]
     Active Substance: CARBOPLATIN
     Indication: Ovarian cancer
     Dosage: 5 AUC
     Route: 040
     Dates: start: 20190308
  6. PACLITAXEL [Suspect]
     Active Substance: PACLITAXEL
     Indication: Ovarian cancer
     Dosage: 296 MG
     Route: 040
     Dates: start: 20190308
  7. DEXAMETHASONE [Concomitant]
     Active Substance: DEXAMETHASONE
     Indication: Premedication
     Dosage: UNK

REACTIONS (1)
  - Spinal fracture [Recovered/Resolved]

NARRATIVE: CASE EVENT DATE: 20201008
